FAERS Safety Report 10671568 (Version 1)
Quarter: 2014Q4

REPORT INFORMATION
  Report Type: Spontaneous
  Country: US (occurrence: None)
  Receive Date: 20141222
  Receipt Date: 20141222
  Transmission Date: 20150529
  Serious: Yes (Life-Threatening, Disabling)
  Sender: FDA-Public Use
  Company Number: None

PATIENT
  Age: 27 Year
  Sex: Male
  Weight: 86.18 kg

DRUGS (1)
  1. FINASTERIDE. [Suspect]
     Active Substance: FINASTERIDE
     Indication: ALOPECIA
     Route: 048
     Dates: start: 20110101, end: 20141221

REACTIONS (7)
  - Depression [None]
  - Pain [None]
  - Anxiety [None]
  - Pollakiuria [None]
  - Tinnitus [None]
  - Weight increased [None]
  - Emotional poverty [None]

NARRATIVE: CASE EVENT DATE: 20141221
